FAERS Safety Report 15459655 (Version 1)
Quarter: 2018Q4

REPORT INFORMATION
  Report Type: Spontaneous
  Country: PT (occurrence: PT)
  Receive Date: 20181003
  Receipt Date: 20181003
  Transmission Date: 20190204
  Serious: Yes (Other)
  Sender: FDA-Public Use
  Company Number: PT-JNJFOC-20180921274

PATIENT

DRUGS (12)
  1. INFLIXIMAB, RECOMBINANT [Suspect]
     Active Substance: INFLIXIMAB
     Indication: COLITIS ULCERATIVE
     Route: 042
  2. METHOTREXATE. [Suspect]
     Active Substance: METHOTREXATE
     Indication: CROHN^S DISEASE
     Route: 065
  3. AZATHIOPRINE. [Suspect]
     Active Substance: AZATHIOPRINE
     Indication: COLITIS ULCERATIVE
     Route: 065
  4. INFLIXIMAB, RECOMBINANT [Suspect]
     Active Substance: INFLIXIMAB
     Indication: CROHN^S DISEASE
     Route: 042
  5. ADALIMUMAB [Suspect]
     Active Substance: ADALIMUMAB
     Indication: CROHN^S DISEASE
     Route: 065
  6. 5-AMINOSALICYLIC ACID [Suspect]
     Active Substance: MESALAMINE
     Indication: CROHN^S DISEASE
     Route: 065
  7. 5-AMINOSALICYLIC ACID [Suspect]
     Active Substance: MESALAMINE
     Indication: COLITIS ULCERATIVE
     Route: 065
  8. AZATHIOPRINE. [Suspect]
     Active Substance: AZATHIOPRINE
     Indication: CROHN^S DISEASE
     Route: 065
  9. ADALIMUMAB [Suspect]
     Active Substance: ADALIMUMAB
     Indication: COLITIS ULCERATIVE
     Route: 065
  10. SULFASALAZINE. [Suspect]
     Active Substance: SULFASALAZINE
     Indication: CROHN^S DISEASE
     Route: 065
  11. METHOTREXATE. [Suspect]
     Active Substance: METHOTREXATE
     Indication: COLITIS ULCERATIVE
     Route: 065
  12. SULFASALAZINE. [Suspect]
     Active Substance: SULFASALAZINE
     Indication: COLITIS ULCERATIVE
     Route: 065

REACTIONS (27)
  - Rosacea [Unknown]
  - Vitiligo [Unknown]
  - Lichen planus [Unknown]
  - Skin papilloma [Unknown]
  - Lice infestation [Unknown]
  - Systemic lupus erythematosus [Unknown]
  - Onychomycosis [Unknown]
  - Impetigo [Unknown]
  - Pruritus generalised [Unknown]
  - Dermatitis [Unknown]
  - Urticarial vasculitis [Unknown]
  - Alopecia areata [Unknown]
  - Alopecia [Unknown]
  - Tinea versicolour [Unknown]
  - Acne [Unknown]
  - Secondary syphilis [Unknown]
  - Acarodermatitis [Unknown]
  - Candida infection [Unknown]
  - Hidradenitis [Unknown]
  - Body tinea [Unknown]
  - Herpes zoster [Unknown]
  - Paronychia [Unknown]
  - Subcutaneous abscess [Unknown]
  - Urticaria [Unknown]
  - Psoriasis [Unknown]
  - Folliculitis [Unknown]
  - Anogenital warts [Unknown]
